FAERS Safety Report 9969749 (Version 1)
Quarter: 2014Q1

REPORT INFORMATION
  Report Type: Spontaneous
  Country: US (occurrence: None)
  Receive Date: 20140131
  Receipt Date: 20140131
  Transmission Date: 20141002
  Serious: Yes (Hospitalization)
  Sender: FDA-Public Use
  Company Number: 087916

PATIENT
  Sex: Male

DRUGS (4)
  1. KEPPRA [Suspect]
     Indication: CONVULSION
     Dosage: 750 MG QID, 750 MG 4/DAILY
     Dates: end: 2013
  2. DILANTIN /00017401/ [Concomitant]
  3. DEPAKOTE [Concomitant]
  4. TOPAMAX [Concomitant]

REACTIONS (1)
  - Convulsion [None]
